FAERS Safety Report 7052953-3 (Version None)
Quarter: 2010Q4

REPORT INFORMATION
  Report Type: 
  Country: None (occurrence: None)
  Receive Date: 20101020
  Receipt Date: 20101011
  Transmission Date: 20110411
  Serious: No
  Sender: FDA-Public Use
  Company Number: US-BIOGENIDEC-2010BI035774

PATIENT
  Sex: Female

DRUGS (1)
  1. TYSABRI [Suspect]
     Indication: MULTIPLE SCLEROSIS
     Route: 042
     Dates: start: 20070822

REACTIONS (6)
  - INTENTION TREMOR [None]
  - LIPOMA [None]
  - MEMORY IMPAIRMENT [None]
  - STRESS [None]
  - WOUND ABSCESS [None]
  - WOUND DEHISCENCE [None]
